FAERS Safety Report 12847135 (Version 3)
Quarter: 2016Q4

REPORT INFORMATION
  Report Type: Spontaneous
  Country: BR (occurrence: BR)
  Receive Date: 20161014
  Receipt Date: 20161111
  Transmission Date: 20170207
  Serious: Yes (Disabling)
  Sender: FDA-Public Use
  Company Number: BR-B.I. PHARMACEUTICALS,INC./RIDGEFIELD-2016-BI-066352

PATIENT
  Age: 66 Year
  Sex: Female
  Weight: 63 kg

DRUGS (11)
  1. MICARDIS [Suspect]
     Active Substance: TELMISARTAN
     Dosage: 2 TABLETS OF 80+5MG DAILY
     Route: 048
  2. ESCITALOPRAM [Concomitant]
     Active Substance: ESCITALOPRAM OXALATE
     Indication: ANXIETY
     Route: 048
     Dates: start: 20161001
  3. FLUOXETINE [Concomitant]
     Active Substance: FLUOXETINE HYDROCHLORIDE
     Indication: DEPRESSION
     Route: 048
     Dates: start: 20161013
  4. RIVOTRIL [Concomitant]
     Active Substance: CLONAZEPAM
     Indication: PANIC DISORDER
     Route: 048
     Dates: start: 2015
  5. HALOPERIDOL. [Concomitant]
     Active Substance: HALOPERIDOL
     Indication: HALLUCINATION
     Route: 048
  6. SELOZOK [Concomitant]
     Active Substance: METOPROLOL SUCCINATE
     Indication: HYPERTENSION
     Route: 048
     Dates: start: 201609
  7. MICARDIS [Suspect]
     Active Substance: TELMISARTAN
     Indication: HYPERTENSION
     Dosage: 80+5MG
     Route: 048
     Dates: start: 2014
  8. AMITRIPTILINA [Concomitant]
     Active Substance: AMITRIPTYLINE HYDROCHLORIDE
     Indication: INSOMNIA
     Route: 048
     Dates: start: 20161001
  9. METFORMIN [Concomitant]
     Active Substance: METFORMIN HYDROCHLORIDE
     Indication: TYPE 2 DIABETES MELLITUS
     Route: 048
     Dates: start: 2006
  10. NIMODIPINO [Concomitant]
     Indication: DRUG THERAPY
     Route: 048
     Dates: start: 20160916
  11. TRIMETAZIDINE [Concomitant]
     Active Substance: TRIMETAZIDINE
     Indication: INFLAMMATION
     Route: 048
     Dates: start: 20161013

REACTIONS (7)
  - Syncope [Recovered/Resolved]
  - Peripheral swelling [Recovered/Resolved]
  - Vertigo [Not Recovered/Not Resolved]
  - Incorrect dose administered [Unknown]
  - Positive expiratory pressure therapy [Not Recovered/Not Resolved]
  - Peripheral swelling [Recovered/Resolved]
  - Incorrect dose administered [Not Recovered/Not Resolved]

NARRATIVE: CASE EVENT DATE: 2014
